FAERS Safety Report 5426974-8 (Version None)
Quarter: 2007Q3

REPORT INFORMATION
  Report Type: 
  Country: None (occurrence: None)
  Receive Date: 20070827
  Receipt Date: 20070815
  Transmission Date: 20080115
  Serious: Yes (Hospitalization)
  Sender: FDA-Public Use
  Company Number: GB-MERCK-0708GBR00087

PATIENT
  Age: 55 Year
  Sex: Female
  Weight: 60 kg

DRUGS (8)
  1. DEXAMETHASONE [Suspect]
     Route: 065
     Dates: start: 20061201, end: 20061201
  2. DEXAMETHASONE [Suspect]
     Route: 065
     Dates: start: 20050701
  3. ALFENTANIL HYDROCHLORIDE [Concomitant]
     Indication: ANAESTHESIA
     Route: 065
     Dates: start: 20050701, end: 20050701
  4. FENTANYL [Concomitant]
     Indication: ANAESTHESIA
     Route: 065
     Dates: start: 20050701, end: 20050701
  5. PROPOFOL [Concomitant]
     Indication: ANAESTHESIA
     Route: 065
     Dates: start: 20050701, end: 20050701
  6. ACETAMINOPHEN [Concomitant]
     Indication: MUSCULOSKELETAL PAIN
     Route: 048
     Dates: start: 20050501
  7. CODEINE PHOSPHATE [Concomitant]
     Indication: MUSCULOSKELETAL PAIN
     Route: 065
     Dates: start: 20050501
  8. GABAPENTIN [Suspect]
     Indication: MUSCULOSKELETAL PAIN
     Route: 065
     Dates: start: 20050501

REACTIONS (3)
  - DYSTONIA [None]
  - MOVEMENT DISORDER [None]
  - MYOCLONUS [None]
